FAERS Safety Report 25538369 (Version 1)
Quarter: 2025Q3

REPORT INFORMATION
  Report Type: Spontaneous
  Country: IN (occurrence: IN)
  Receive Date: 20250710
  Receipt Date: 20250710
  Transmission Date: 20251021
  Serious: Yes (Other)
  Sender: MYLAN
  Company Number: IN-MYLANLABS-2025M1056431

PATIENT
  Age: 10 Year
  Sex: Male
  Weight: 25 kg

DRUGS (40)
  1. TACROLIMUS [Interacting]
     Active Substance: TACROLIMUS
     Indication: Immunosuppressant drug therapy
     Dosage: 3 MILLIGRAM, BID
     Dates: start: 2021
  2. TACROLIMUS [Interacting]
     Active Substance: TACROLIMUS
     Dosage: 3 MILLIGRAM, BID
     Route: 065
     Dates: start: 2021
  3. TACROLIMUS [Interacting]
     Active Substance: TACROLIMUS
     Dosage: 3 MILLIGRAM, BID
     Route: 065
     Dates: start: 2021
  4. TACROLIMUS [Interacting]
     Active Substance: TACROLIMUS
     Dosage: 3 MILLIGRAM, BID
     Dates: start: 2021
  5. KETOCONAZOLE [Interacting]
     Active Substance: KETOCONAZOLE
     Indication: Immunosuppressant drug therapy
     Dosage: 100 MILLIGRAM, QD
  6. KETOCONAZOLE [Interacting]
     Active Substance: KETOCONAZOLE
     Dosage: 100 MILLIGRAM, QD
  7. KETOCONAZOLE [Interacting]
     Active Substance: KETOCONAZOLE
     Dosage: 100 MILLIGRAM, QD
     Route: 065
  8. KETOCONAZOLE [Interacting]
     Active Substance: KETOCONAZOLE
     Dosage: 100 MILLIGRAM, QD
     Route: 065
  9. KETOCONAZOLE [Interacting]
     Active Substance: KETOCONAZOLE
  10. KETOCONAZOLE [Interacting]
     Active Substance: KETOCONAZOLE
  11. KETOCONAZOLE [Interacting]
     Active Substance: KETOCONAZOLE
     Route: 065
  12. KETOCONAZOLE [Interacting]
     Active Substance: KETOCONAZOLE
     Route: 065
  13. MYCOPHENOLIC ACID [Concomitant]
     Active Substance: MYCOPHENOLIC ACID
     Indication: Immunosuppressant drug therapy
     Dosage: 180 MILLIGRAM, BID
     Dates: start: 2021
  14. MYCOPHENOLIC ACID [Concomitant]
     Active Substance: MYCOPHENOLIC ACID
     Dosage: 180 MILLIGRAM, BID
     Route: 065
     Dates: start: 2021
  15. MYCOPHENOLIC ACID [Concomitant]
     Active Substance: MYCOPHENOLIC ACID
     Dosage: 180 MILLIGRAM, BID
     Route: 065
     Dates: start: 2021
  16. MYCOPHENOLIC ACID [Concomitant]
     Active Substance: MYCOPHENOLIC ACID
     Dosage: 180 MILLIGRAM, BID
     Dates: start: 2021
  17. PREDNISOLONE [Concomitant]
     Active Substance: PREDNISOLONE
     Indication: Immunosuppressant drug therapy
     Dosage: 20 MILLIGRAM, QD
     Dates: start: 2021
  18. PREDNISOLONE [Concomitant]
     Active Substance: PREDNISOLONE
     Dosage: 20 MILLIGRAM, QD
     Dates: start: 2021
  19. PREDNISOLONE [Concomitant]
     Active Substance: PREDNISOLONE
     Dosage: 20 MILLIGRAM, QD
     Route: 065
     Dates: start: 2021
  20. PREDNISOLONE [Concomitant]
     Active Substance: PREDNISOLONE
     Dosage: 20 MILLIGRAM, QD
     Route: 065
     Dates: start: 2021
  21. PREDNISOLONE [Concomitant]
     Active Substance: PREDNISOLONE
     Dosage: 5 MILLIGRAM, QD (GRADUALLY TAPERED OVER 2 MONTHS TO A MINIMUM DOSE)
     Dates: start: 2021
  22. PREDNISOLONE [Concomitant]
     Active Substance: PREDNISOLONE
     Dosage: 5 MILLIGRAM, QD (GRADUALLY TAPERED OVER 2 MONTHS TO A MINIMUM DOSE)
     Dates: start: 2021
  23. PREDNISOLONE [Concomitant]
     Active Substance: PREDNISOLONE
     Dosage: 5 MILLIGRAM, QD (GRADUALLY TAPERED OVER 2 MONTHS TO A MINIMUM DOSE)
     Route: 065
     Dates: start: 2021
  24. PREDNISOLONE [Concomitant]
     Active Substance: PREDNISOLONE
     Dosage: 5 MILLIGRAM, QD (GRADUALLY TAPERED OVER 2 MONTHS TO A MINIMUM DOSE)
     Route: 065
     Dates: start: 2021
  25. CEFOPERAZONE\SULBACTAM [Concomitant]
     Active Substance: CEFOPERAZONE\SULBACTAM
     Indication: Infection prophylaxis
  26. CEFOPERAZONE\SULBACTAM [Concomitant]
     Active Substance: CEFOPERAZONE\SULBACTAM
     Route: 065
  27. CEFOPERAZONE\SULBACTAM [Concomitant]
     Active Substance: CEFOPERAZONE\SULBACTAM
     Route: 065
  28. CEFOPERAZONE\SULBACTAM [Concomitant]
     Active Substance: CEFOPERAZONE\SULBACTAM
  29. VALGANCICLOVIR [Concomitant]
     Active Substance: VALGANCICLOVIR
     Indication: Infection prophylaxis
     Dosage: 225 MILLIGRAM, QD (FOR 2 MONTHS)
     Dates: start: 2021
  30. VALGANCICLOVIR [Concomitant]
     Active Substance: VALGANCICLOVIR
     Dosage: 225 MILLIGRAM, QD (FOR 2 MONTHS)
     Route: 048
     Dates: start: 2021
  31. VALGANCICLOVIR [Concomitant]
     Active Substance: VALGANCICLOVIR
     Dosage: 225 MILLIGRAM, QD (FOR 2 MONTHS)
     Route: 048
     Dates: start: 2021
  32. VALGANCICLOVIR [Concomitant]
     Active Substance: VALGANCICLOVIR
     Dosage: 225 MILLIGRAM, QD (FOR 2 MONTHS)
     Dates: start: 2021
  33. SULFAMETHOXAZOLE [Concomitant]
     Active Substance: SULFAMETHOXAZOLE
     Indication: Infection prophylaxis
  34. SULFAMETHOXAZOLE [Concomitant]
     Active Substance: SULFAMETHOXAZOLE
     Route: 065
  35. SULFAMETHOXAZOLE [Concomitant]
     Active Substance: SULFAMETHOXAZOLE
     Route: 065
  36. SULFAMETHOXAZOLE [Concomitant]
     Active Substance: SULFAMETHOXAZOLE
  37. TRIMETHOPRIM [Concomitant]
     Active Substance: TRIMETHOPRIM
     Indication: Infection prophylaxis
  38. TRIMETHOPRIM [Concomitant]
     Active Substance: TRIMETHOPRIM
     Route: 048
  39. TRIMETHOPRIM [Concomitant]
     Active Substance: TRIMETHOPRIM
     Route: 048
  40. TRIMETHOPRIM [Concomitant]
     Active Substance: TRIMETHOPRIM

REACTIONS (4)
  - Drug interaction [Unknown]
  - Drug ineffective [Unknown]
  - Off label use [Unknown]
  - No adverse event [Unknown]
